FAERS Safety Report 6827205-4 (Version None)
Quarter: 2010Q3

REPORT INFORMATION
  Report Type: 
  Country: None (occurrence: None)
  Receive Date: 20100709
  Receipt Date: 20070201
  Transmission Date: 20110219
  Serious: Yes (Hospitalization)
  Sender: FDA-Public Use
  Company Number: JP-SANOFI-AVENTIS-F01200700163

PATIENT
  Age: 59 Year
  Sex: Female
  Weight: 48 kg

DRUGS (3)
  1. CLOPIDOGREL BISULFATE [Suspect]
     Indication: CEREBROVASCULAR DISORDER
     Route: 048
     Dates: start: 20060728
  2. FUROSEMIDE [Concomitant]
     Indication: HYPERTENSION
     Route: 048
     Dates: start: 20031006
  3. ALDACTONE [Concomitant]
     Indication: HYPERTENSION
     Route: 048
     Dates: start: 20031006

REACTIONS (1)
  - ANAEMIA [None]
